FAERS Safety Report 5294426-4 (Version None)
Quarter: 2007Q2

REPORT INFORMATION
  Report Type: 
  Country: None (occurrence: None)
  Receive Date: 20070409
  Receipt Date: 20070409
  Transmission Date: 20071010
  Serious: No
  Sender: FDA-Public Use
  Company Number: None

PATIENT
  Sex: Male
  Weight: 83.9154 kg

DRUGS (1)
  1. LOTREL [Suspect]
     Indication: HYPERTENSION
     Dosage: ONE PILL DAILY PO
     Route: 048
     Dates: start: 20061231, end: 20070131

REACTIONS (3)
  - LICHEN PLANUS [None]
  - PENIS DISORDER [None]
  - SCAR [None]
